FAERS Safety Report 20337883 (Version 2)
Quarter: 2022Q2

REPORT INFORMATION
  Report Type: Spontaneous
  Country: US (occurrence: US)
  Receive Date: 20220114
  Receipt Date: 20220520
  Transmission Date: 20220721
  Serious: No
  Sender: FDA-Public Use
  Company Number: US-SA-SAC20220112000262

PATIENT
  Sex: Female

DRUGS (1)
  1. DUPIXENT [Suspect]
     Active Substance: DUPILUMAB
     Indication: Dermatitis atopic
     Dosage: 300 MG, QOW
     Route: 058
     Dates: start: 20210827

REACTIONS (4)
  - Dry eye [Not Recovered/Not Resolved]
  - Eye irritation [Unknown]
  - Eye pruritus [Not Recovered/Not Resolved]
  - Eye inflammation [Not Recovered/Not Resolved]
